FAERS Safety Report 4343073-7 (Version None)
Quarter: 2004Q2

REPORT INFORMATION
  Report Type: 
  Country: None (occurrence: None)
  Receive Date: 20040421
  Receipt Date: 20040305
  Transmission Date: 20050107
  Serious: Yes (Hospitalization)
  Sender: FDA-Public Use
  Company Number: US-BRISTOL-MYERS SQUIBB COMPANY-12526018

PATIENT
  Age: 55 Year
  Sex: Female

DRUGS (7)
  1. CETUXIMAB [Suspect]
     Indication: COLORECTAL CANCER
     Dosage: LD: 04-MAR-04 AT 732MG. IV RATE DECREASED DUE TO INITIAL EVENT.
     Route: 042
     Dates: start: 20040309
  2. COUMADIN [Concomitant]
     Dates: start: 20031013
  3. PERCOCET [Concomitant]
     Dates: start: 20031209
  4. NEXIUM [Concomitant]
     Dates: start: 20031013
  5. IMITREX [Concomitant]
     Dates: start: 20031202
  6. VITAMIN B6 [Concomitant]
     Dates: start: 20031118
  7. ADVIL [Concomitant]
     Dates: start: 20030302

REACTIONS (3)
  - LEUKOCYTOSIS [None]
  - MIGRAINE [None]
  - PYREXIA [None]
